FAERS Safety Report 9407928 (Version 1)
Quarter: 2013Q3

REPORT INFORMATION
  Report Type: Spontaneous
  Country: US (occurrence: None)
  Receive Date: 20130717
  Receipt Date: 20130717
  Transmission Date: 20140515
  Serious: Yes (Hospitalization)
  Sender: FDA-Public Use
  Company Number: None

PATIENT
  Age: 82 Year
  Sex: Male
  Weight: 79.3 kg

DRUGS (2)
  1. LITHIUM [Suspect]
     Indication: ACUTE MYELOID LEUKAEMIA
     Dates: start: 20130528, end: 20130612
  2. TRETINOIN [Suspect]
     Indication: ACUTE MYELOID LEUKAEMIA
     Dosage: 2X/D; D1-7, D15-21
     Dates: start: 20130520, end: 20130603

REACTIONS (4)
  - Delirium [None]
  - Disorientation [None]
  - Restlessness [None]
  - Encephalomalacia [None]
